FAERS Safety Report 13530351 (Version 3)
Quarter: 2017Q4

REPORT INFORMATION
  Report Type: Spontaneous
  Country: US (occurrence: US)
  Receive Date: 20170509
  Receipt Date: 20171124
  Transmission Date: 20180320
  Serious: Yes (Hospitalization)
  Sender: FDA-Public Use
  Company Number: US-ASTRAZENECA-2017SE47476

PATIENT
  Age: 69 Year
  Sex: Female
  Weight: 36.3 kg

DRUGS (3)
  1. SYMBICORT [Suspect]
     Active Substance: BUDESONIDE\FORMOTEROL FUMARATE DIHYDRATE
     Indication: EMPHYSEMA
     Dosage: 160/45 MCG TWO PUFFS TWICE PER DAY
     Route: 055
     Dates: start: 2013
  2. SPIRIVA [Concomitant]
     Active Substance: TIOTROPIUM BROMIDE MONOHYDRATE
     Dates: start: 2016
  3. SYMBICORT [Suspect]
     Active Substance: BUDESONIDE\FORMOTEROL FUMARATE DIHYDRATE
     Indication: EMPHYSEMA
     Dosage: 160/45 MCG TWO PUFFS TWICE PER DAY
     Route: 055
     Dates: start: 20171115

REACTIONS (6)
  - Oral disorder [Unknown]
  - Dyspnoea [Unknown]
  - Drug ineffective [Unknown]
  - Intentional product misuse [Unknown]
  - Sinusitis [Unknown]
  - Parosmia [Unknown]

NARRATIVE: CASE EVENT DATE: 2013
